FAERS Safety Report 6845009-3 (Version None)
Quarter: 2010Q3

REPORT INFORMATION
  Report Type: 
  Country: None (occurrence: None)
  Receive Date: 20100715
  Receipt Date: 20100707
  Transmission Date: 20110219
  Serious: Yes (Other)
  Sender: FDA-Public Use
  Company Number: CA-WYE-H15369910

PATIENT
  Age: 15 Year
  Sex: Male

DRUGS (1)
  1. ADVIL LIQUI-GELS [Suspect]
     Indication: HEADACHE
     Dosage: 1 LIQUI-GEL X 1
     Route: 048
     Dates: start: 20100520, end: 20100520

REACTIONS (4)
  - LOSS OF CONSCIOUSNESS [None]
  - OEDEMA MOUTH [None]
  - RESPIRATORY ARREST [None]
  - URTICARIA [None]
